FAERS Safety Report 21256943 (Version 1)
Quarter: 2022Q3

REPORT INFORMATION
  Report Type: Report from Study
  Country: US (occurrence: US)
  Receive Date: 20220826
  Receipt Date: 20220826
  Transmission Date: 20221026
  Serious: Yes (Life-Threatening, Hospitalization, Other)
  Sender: FDA-Public Use
  Company Number: US-BRISTOL-MYERS SQUIBB COMPANY-2022-071531

PATIENT
  Age: 75 Year
  Sex: Male
  Weight: 105.23 kg

DRUGS (1)
  1. REVLIMID [Suspect]
     Active Substance: LENALIDOMIDE
     Indication: Plasma cell myeloma
     Dosage: 21 OUT OF 28 DAYS
     Route: 048
     Dates: start: 2016

REACTIONS (7)
  - Hypertension [Unknown]
  - Cardiac failure congestive [Unknown]
  - Neuropathy peripheral [Unknown]
  - Urinary tract infection [Recovering/Resolving]
  - Pruritus [Unknown]
  - Prescribed underdose [Unknown]
  - Tremor [Unknown]

NARRATIVE: CASE EVENT DATE: 20220601
